FAERS Safety Report 24829199 (Version 2)
Quarter: 2025Q1

REPORT INFORMATION
  Report Type: Spontaneous
  Country: US (occurrence: US)
  Receive Date: 20250110
  Receipt Date: 20250225
  Transmission Date: 20250408
  Serious: Yes (Death, Other)
  Sender: ROCHE
  Company Number: US-ROCHE-10000175409

PATIENT
  Age: 68 Year
  Sex: Female
  Weight: 98.88 kg

DRUGS (20)
  1. ACTEMRA [Suspect]
     Active Substance: TOCILIZUMAB
     Indication: Rheumatoid arthritis
     Route: 058
  2. ACTEMRA [Suspect]
     Active Substance: TOCILIZUMAB
     Route: 058
  3. CREON [Concomitant]
     Active Substance: PANCRELIPASE AMYLASE\PANCRELIPASE LIPASE\PANCRELIPASE PROTEASE
  4. CYTOMEL [Concomitant]
     Active Substance: LIOTHYRONINE SODIUM
  5. DULOXETINE [Concomitant]
     Active Substance: DULOXETINE
  6. Esomeprazole Euro K 20 [Concomitant]
  7. HYDROCHLOROTHIAZIDE [Concomitant]
     Active Substance: HYDROCHLOROTHIAZIDE
  8. MONTELUKAST SODIUM [Concomitant]
     Active Substance: MONTELUKAST SODIUM
  9. CROMOLYN SODIUM [Concomitant]
     Active Substance: CROMOLYN SODIUM
  10. OMNARIS [Concomitant]
     Active Substance: CICLESONIDE
  11. ALBUTEROL [Concomitant]
     Active Substance: ALBUTEROL
  12. PROCHLORAZINE [Concomitant]
  13. SPIRIVA [Concomitant]
     Active Substance: TIOTROPIUM BROMIDE MONOHYDRATE
  14. QUETIAPINE [Concomitant]
     Active Substance: QUETIAPINE
  15. SYNTHROID [Concomitant]
     Active Substance: LEVOTHYROXINE SODIUM
  16. JAMP K20 [Concomitant]
  17. JAMP QUETIAPINE [Concomitant]
  18. MAR DULOXETINE [Concomitant]
  19. MONTELUKAST SODIUM [Concomitant]
     Active Substance: MONTELUKAST SODIUM
  20. LOPERAMIDE HYDROCHLORIDE [Concomitant]
     Active Substance: LOPERAMIDE HYDROCHLORIDE

REACTIONS (5)
  - Pancreatic carcinoma metastatic [Fatal]
  - Yellow skin [Unknown]
  - Biliary obstruction [Unknown]
  - Gallbladder disorder [Unknown]
  - Hepatic neoplasm [Unknown]

NARRATIVE: CASE EVENT DATE: 20220401
